FAERS Safety Report 5166744-1 (Version None)
Quarter: 2006Q4

REPORT INFORMATION
  Report Type: 
  Country: None (occurrence: None)
  Receive Date: 20061129
  Receipt Date: 20061120
  Transmission Date: 20070319
  Serious: Yes (Other)
  Sender: FDA-Public Use
  Company Number: GXKR2006NL07577

PATIENT
  Age: 45 Year
  Sex: Female
  Weight: 67 kg

DRUGS (3)
  1. METOPROLOL TARTRATE [Suspect]
     Dosage: 100 MG, QD, ORAL
     Route: 048
     Dates: start: 20060221
  2. TERBINAFINE [Suspect]
     Dosage: 250 MG, QD, ORAL
     Route: 048
     Dates: start: 20061020, end: 20061103
  3. AMITRIPTYLINE HCL [Suspect]
     Dosage: 10 MG, QD, ORAL
     Route: 048
     Dates: start: 20060207

REACTIONS (3)
  - DRUG INTERACTION [None]
  - HEADACHE [None]
  - INSOMNIA [None]
